FAERS Safety Report 5145724-6 (Version None)
Quarter: 2006Q4

REPORT INFORMATION
  Report Type: 
  Country: None (occurrence: None)
  Receive Date: 20060915
  Receipt Date: 20051026
  Transmission Date: 20070319
  Serious: Yes (Other)
  Sender: FDA-Public Use
  Company Number: 2005147819

PATIENT
  Age: 65 Year
  Sex: Female

DRUGS (1)
  1. GLIPIZIDE [Suspect]
     Indication: ILL-DEFINED DISORDER

REACTIONS (2)
  - BLOOD GLUCOSE ABNORMAL [None]
  - TREMOR [None]
